FAERS Safety Report 4580040-2 (Version None)
Quarter: 2005Q1

REPORT INFORMATION
  Report Type: 
  Country: None (occurrence: None)
  Receive Date: 20050214
  Receipt Date: 20040616
  Transmission Date: 20050727
  Serious: Yes (Other)
  Sender: FDA-Public Use
  Company Number: US-MERCK-0406USA01700B1

PATIENT
  Sex: Male
  Weight: 4 kg

DRUGS (7)
  1. SINGULAIR [Suspect]
     Dates: start: 20000101, end: 20040101
  2. SINGULAIR [Suspect]
     Dates: start: 20040616
  3. ALBUTEROL [Concomitant]
  4. ATROVENT [Concomitant]
  5. PULMICORT [Concomitant]
  6. SEREVENT [Concomitant]
  7. VITAMINS (UNSPECIFIED) [Concomitant]

REACTIONS (8)
  - AMNIOTIC FLUID VOLUME DECREASED [None]
  - BRADYCARDIA FOETAL [None]
  - CAESAREAN SECTION [None]
  - DRUG EXPOSURE DURING PREGNANCY [None]
  - FOETAL HEART RATE DECREASED [None]
  - NASOPHARYNGITIS [None]
  - PREGNANCY [None]
  - UMBILICAL CORD AROUND NECK [None]
